FAERS Safety Report 22273363 (Version 13)
Quarter: 2023Q4

REPORT INFORMATION
  Report Type: Spontaneous
  Country: CA (occurrence: CA)
  Receive Date: 20230502
  Receipt Date: 20231120
  Transmission Date: 20240109
  Serious: Yes (Other)
  Sender: FDA-Public Use
  Company Number: CA-PFIZER INC-202201353447

PATIENT
  Age: 17 Year
  Sex: Male
  Weight: 170 kg

DRUGS (5)
  1. ABRILADA [Suspect]
     Active Substance: ADALIMUMAB-AFZB
     Indication: Hidradenitis
     Dosage: 160 MG AT WEEK 0, 80 MG AT WEEK 2 AND 40MG EVERY WEEK BEGINNING AT WEEK 4
     Route: 058
     Dates: start: 20230314
  2. ABRILADA [Suspect]
     Active Substance: ADALIMUMAB-AFZB
     Indication: Cellulitis
     Dosage: 40 MG, WEEK 0 80MG, THEN 40MG STARTING WEEK 1
     Route: 058
     Dates: start: 20230419
  3. ABRILADA [Suspect]
     Active Substance: ADALIMUMAB-AFZB
     Dosage: 160 MG AT WEEK 0, 80 MG AT WEEK 2 AND 40MG EVERY WEEK BEGINNING AT WEEK 4
     Route: 058
     Dates: start: 20230707
  4. CLINDOXYL [Concomitant]
     Active Substance: BENZOYL PEROXIDE\CLINDAMYCIN PHOSPHATE
     Dosage: 1 DF
     Route: 065
  5. CEPHALEXIN [Concomitant]
     Active Substance: CEPHALEXIN
     Dosage: UNK

REACTIONS (29)
  - Ocular hyperaemia [Recovering/Resolving]
  - Headache [Recovered/Resolved]
  - Off label use [Unknown]
  - Off label use [Unknown]
  - Feeling hot [Recovering/Resolving]
  - C-reactive protein increased [Not Recovered/Not Resolved]
  - Peripheral swelling [Recovering/Resolving]
  - Tenderness [Recovering/Resolving]
  - Muscle spasms [Unknown]
  - Tension [Unknown]
  - Nasopharyngitis [Recovering/Resolving]
  - Fatigue [Recovering/Resolving]
  - Conjunctivitis [Recovering/Resolving]
  - Ocular hyperaemia [Recovered/Resolved]
  - Eye inflammation [Recovering/Resolving]
  - Lacrimation increased [Recovered/Resolved]
  - Pruritus [Unknown]
  - Pyrexia [Recovered/Resolved]
  - Pharyngitis [Recovered/Resolved]
  - Sinusitis [Unknown]
  - Ear infection [Recovered/Resolved]
  - Swelling [Recovering/Resolving]
  - Pain [Recovering/Resolving]
  - Blood test abnormal [Unknown]
  - Heart rate increased [Unknown]
  - Illness [Unknown]
  - Dizziness [Unknown]
  - Skin fissures [Unknown]
  - Skin abrasion [Unknown]

NARRATIVE: CASE EVENT DATE: 20230101
